FAERS Safety Report 6164052-3 (Version None)
Quarter: 2009Q2

REPORT INFORMATION
  Report Type: 
  Country: None (occurrence: None)
  Receive Date: 20090422
  Receipt Date: 20090421
  Transmission Date: 20091009
  Serious: Yes (Hospitalization)
  Sender: FDA-Public Use
  Company Number: US-RB-008752-09

PATIENT
  Age: 25 Year
  Sex: Female

DRUGS (2)
  1. SUBOXONE [Suspect]
     Indication: DRUG DEPENDENCE
     Route: 060
     Dates: start: 20081001, end: 20090114
  2. METHAMPHETAMINE HYDROCHLORIDE [Suspect]
     Indication: DRUG USE FOR UNKNOWN INDICATION
     Dosage: UNKNOWN DOSAGE, FORM AND ROUTE

REACTIONS (3)
  - BLOOD PRESSURE INCREASED [None]
  - DRUG WITHDRAWAL SYNDROME [None]
  - HOSPITALISATION [None]
